FAERS Safety Report 9453003 (Version 1)
Quarter: 2013Q3

REPORT INFORMATION
  Report Type: Spontaneous
  Country: BR (occurrence: BR)
  Receive Date: 20130812
  Receipt Date: 20130812
  Transmission Date: 20140515
  Serious: Yes (Hospitalization)
  Sender: FDA-Public Use
  Company Number: BR-SANOFI-AVENTIS-2013SA079157

PATIENT
  Age: 58 Year
  Sex: Male
  Weight: 85 kg

DRUGS (8)
  1. LANTUS SOLOSTAR [Suspect]
     Indication: TYPE 2 DIABETES MELLITUS
     Dosage: STARTED 1 YEAR AND 8 MONTHS AGO
     Route: 058
  2. SOLOSTAR [Concomitant]
     Indication: DEVICE THERAPY
  3. JANUMET [Concomitant]
     Indication: TYPE 2 DIABETES MELLITUS
     Dosage: STRENGTH:850MG/50MG
     Route: 048
  4. LIPLESS [Concomitant]
     Indication: BLOOD TRIGLYCERIDES
     Dosage: STRENGTH: 100 MG
     Route: 048
  5. ARADOIS [Concomitant]
     Indication: HYPERTENSION
     Dosage: STRENGTH: 100 MG
     Route: 048
  6. AMLODIPINE BESILATE [Concomitant]
     Indication: HYPERTENSION
     Dosage: STRENGTH: 10 MG
     Route: 048
  7. XARELTO [Concomitant]
     Indication: ANTICOAGULANT THERAPY
     Dosage: STRENGTH: 20 MG
     Route: 048
  8. BETAPACE [Concomitant]
     Indication: ARRHYTHMIA
     Dosage: STRENGTH: 160 MG
     Route: 048

REACTIONS (1)
  - Cerebrovascular accident [Recovering/Resolving]
